FAERS Safety Report 18142361 (Version 2)
Quarter: 2020Q3

REPORT INFORMATION
  Report Type: Spontaneous
  Country: DE (occurrence: DE)
  Receive Date: 20200813
  Receipt Date: 20200928
  Transmission Date: 20201103
  Serious: Yes (Death, Disabling, Congenital Anomaly, Other)
  Sender: FDA-Public Use
  Company Number: DE-SUN PHARMACEUTICAL INDUSTRIES LTD-2020RR-257204

PATIENT
  Sex: Female
  Weight: 1.45 kg

DRUGS (3)
  1. CITALOPRAM [Suspect]
     Active Substance: CITALOPRAM HYDROBROMIDE
     Dosage: 20 MILLIGRAM, DAILY
     Route: 064
     Dates: start: 201905
  2. CITALOPRAM [Suspect]
     Active Substance: CITALOPRAM HYDROBROMIDE
     Indication: DEPRESSION
     Dosage: 20MG BIS SSW 5, DANACH 10MG ()
     Route: 064
     Dates: start: 2017
  3. CITALOPRAM [Suspect]
     Active Substance: CITALOPRAM HYDROBROMIDE
     Dosage: 10 MILLIGRAM, DAILY
     Route: 064
     Dates: start: 202002

REACTIONS (9)
  - Single umbilical artery [Fatal]
  - Pulmonary function test abnormal [Fatal]
  - Cornelia de Lange syndrome [Fatal]
  - Foetal exposure during pregnancy [Unknown]
  - Cerebellar hypoplasia [Fatal]
  - Atrioventricular septal defect [Fatal]
  - Pyelocaliectasis [Fatal]
  - Aorta hypoplasia [Fatal]
  - Foetal growth restriction [Fatal]
